FAERS Safety Report 10213466 (Version 1)
Quarter: 2014Q2

REPORT INFORMATION
  Report Type: Spontaneous
  Country: GB (occurrence: None)
  Receive Date: 20140529
  Receipt Date: 20140529
  Transmission Date: 20141212
  Serious: Yes (Hospitalization, Other)
  Sender: FDA-Public Use
  Company Number: 2014AP003032

PATIENT
  Age: 63 Year
  Sex: Female

DRUGS (10)
  1. ALENDRONATE [Suspect]
     Indication: RHEUMATOID ARTHRITIS
     Route: 048
     Dates: start: 2006, end: 201305
  2. ADCAL D3 (CALCIUM CARBONATE, COLECALCIFEROL) [Concomitant]
  3. ATENOLOL (ATENOLOL) [Concomitant]
  4. FEXOFENADINE (FEXOFENADINE) [Concomitant]
  5. FOLIC ACID (FOLIC ACID) [Concomitant]
  6. LANSOPRAZOLE (LANSOPRAZOLE) [Concomitant]
  7. METHOTREXATE (METHOTRREXATE) [Concomitant]
  8. NAPROXEN (NAPROXEN) [Concomitant]
  9. PARACETAMOL (PARACETAMOL) [Concomitant]
  10. REMICADE (INFLIXIMAB) [Concomitant]

REACTIONS (3)
  - Atypical femur fracture [None]
  - Arthralgia [None]
  - Osteopenia [None]
